FAERS Safety Report 6575684-2 (Version None)
Quarter: 2010Q1

REPORT INFORMATION
  Report Type: 
  Country: None (occurrence: None)
  Receive Date: 20100208
  Receipt Date: 20100208
  Transmission Date: 20100710
  Serious: No
  Sender: FDA-Public Use
  Company Number: None

PATIENT
  Age: 36 Year
  Sex: Female
  Weight: 72.5755 kg

DRUGS (1)
  1. RANIBIZUMAB [Suspect]
     Indication: PRESUMED OCULAR HISTOPLASMOSIS SYNDROME
     Dosage: 0.5MG INTRAVITREAL
     Dates: start: 20091031

REACTIONS (2)
  - MUSCULAR WEAKNESS [None]
  - NAUSEA [None]
